FAERS Safety Report 4831535-5 (Version None)
Quarter: 2005Q4

REPORT INFORMATION
  Report Type: 
  Country: None (occurrence: None)
  Receive Date: 20051114
  Receipt Date: 20051031
  Transmission Date: 20060501
  Serious: Yes (Other)
  Sender: FDA-Public Use
  Company Number: 2005127677

PATIENT
  Age: 36 Year
  Sex: Female

DRUGS (7)
  1. VIAGRA [Suspect]
     Indication: PULMONARY HYPERTENSION
     Dosage: 150 MG (50 MG, 3 IN 1 D), ORAL
     Route: 048
     Dates: start: 20041104
  2. CAPTOPRIL [Concomitant]
  3. AMIODARONE HCL [Concomitant]
  4. WARFARIN SODIUM [Concomitant]
  5. ALDACTONE [Concomitant]
  6. FUROSEMIDE [Concomitant]
  7. DIGOXIN [Concomitant]

REACTIONS (7)
  - AUTOIMMUNE DISORDER [None]
  - DEAFNESS UNILATERAL [None]
  - EAR INFECTION VIRAL [None]
  - LEUKOPENIA [None]
  - NEUTROPENIA [None]
  - SUDDEN HEARING LOSS [None]
  - VULVOVAGINITIS [None]
